FAERS Safety Report 21600754 (Version 2)
Quarter: 2022Q4

REPORT INFORMATION
  Report Type: Spontaneous
  Country: EG (occurrence: EG)
  Receive Date: 20221116
  Receipt Date: 20221129
  Transmission Date: 20230113
  Serious: Yes (Disabling, Other)
  Sender: FDA-Public Use
  Company Number: EG-NOVOPROD-979282

PATIENT
  Age: 675 Month
  Sex: Female
  Weight: 100 kg

DRUGS (1)
  1. INSULIN HUMAN [Suspect]
     Active Substance: INSULIN HUMAN
     Indication: Diabetes mellitus
     Dosage: 60 IU, QD (45 IU /MORN. AND 15 IU/NIGHT) (STARTED 20 YEARS AGO)
     Route: 058

REACTIONS (1)
  - Diabetic foot [Not Recovered/Not Resolved]

NARRATIVE: CASE EVENT DATE: 20170101
